FAERS Safety Report 8162767-9 (Version None)
Quarter: 2012Q1

REPORT INFORMATION
  Report Type: 
  Country: None (occurrence: None)
  Receive Date: 20120224
  Receipt Date: 20120215
  Transmission Date: 20120608
  Serious: Yes (Hospitalization)
  Sender: FDA-Public Use
  Company Number: US-B.I. PHARMACEUTICALS,INC./RIDGEFIELD-2012-BP-02733BP

PATIENT
  Sex: Female
  Weight: 47.3 kg

DRUGS (10)
  1. METFORMIN HCL [Suspect]
     Indication: TYPE 2 DIABETES MELLITUS
     Dosage: 2000 MG
     Route: 048
     Dates: end: 20120210
  2. ACYCLOVIR [Concomitant]
     Indication: PROPHYLAXIS
     Dosage: 800 MG
  3. PRAVASTATIN [Concomitant]
     Dosage: 80 MG
  4. TRADJENTA [Suspect]
     Indication: TYPE 2 DIABETES MELLITUS
     Dosage: 5 MG
     Route: 048
     Dates: start: 20111206, end: 20120123
  5. TRADJENTA [Suspect]
     Route: 048
     Dates: start: 20120124, end: 20120206
  6. ALLOPURINOL [Concomitant]
     Dosage: 300 MG
  7. FENOFIBRATE [Concomitant]
     Dosage: 200 MG
  8. RAMIPRIL [Concomitant]
     Dosage: 5 MG
  9. EMTRICITABINE/TENOFOVIR DISOPROXIL FUMARATE [Concomitant]
     Indication: HIV INFECTION
     Dosage: 5 MG
  10. ATAZANAVIR SULFATE AND RITONAVIR [Concomitant]
     Indication: HIV INFECTION
     Dosage: 5 MG

REACTIONS (5)
  - WEIGHT DECREASED [None]
  - NAUSEA [None]
  - RENAL FAILURE [None]
  - VOMITING [None]
  - FATIGUE [None]
